FAERS Safety Report 8204527-6 (Version None)
Quarter: 2012Q1

REPORT INFORMATION
  Report Type: 
  Country: None (occurrence: None)
  Receive Date: 20120313
  Receipt Date: 20120308
  Transmission Date: 20120608
  Serious: Yes (Hospitalization, Other)
  Sender: FDA-Public Use
  Company Number: US-PFIZER INC-2012054711

PATIENT
  Sex: Female
  Weight: 39.91 kg

DRUGS (15)
  1. LIPITOR [Suspect]
     Indication: BLOOD CHOLESTEROL INCREASED
     Dosage: 80 MG, DAILY
  2. PANTOPRAZOLE [Suspect]
     Dosage: 30 MG, DAILY
     Dates: start: 20111212, end: 20111201
  3. VITAMIN B6 [Concomitant]
     Dosage: UNK, DAILY
  4. PANTOPRAZOLE [Suspect]
     Indication: GASTROOESOPHAGEAL REFLUX DISEASE
     Dosage: 30 MG, DAILY
     Dates: start: 20110101, end: 20110101
  5. HYZAAR [Suspect]
     Indication: BLOOD PRESSURE ABNORMAL
     Dosage: UNK
  6. ASPIRIN [Concomitant]
     Indication: CARDIAC DISORDER
     Dosage: 81 MG, DAILY
  7. FOLIC ACID [Concomitant]
     Dosage: UNK, DAILY
  8. FISH OIL [Concomitant]
     Dosage: UNK, DAILY
  9. PLAVIX [Concomitant]
     Indication: CARDIAC DISORDER
     Dosage: 75 MG, DAILY
  10. BYSTOLIC [Concomitant]
     Indication: BLOOD PRESSURE ABNORMAL
     Dosage: 10 MG, DAILY
  11. NIASPAN [Concomitant]
     Dosage: UNK
  12. LOVAZA [Concomitant]
     Dosage: UNK,DAILY
  13. MULTI-VITAMINS [Concomitant]
     Dosage: UNK, DAILY
  14. BYSTOLIC [Concomitant]
     Indication: CARDIAC DISORDER
  15. LASIX [Concomitant]
     Indication: CARDIAC DISORDER
     Dosage: 45 MG, DAILY

REACTIONS (6)
  - MALAISE [None]
  - APHAGIA [None]
  - DRUG INEFFECTIVE [None]
  - COUGH [None]
  - BLOOD GLUCOSE INCREASED [None]
  - GASTROOESOPHAGEAL REFLUX DISEASE [None]
